FAERS Safety Report 16079463 (Version 2)
Quarter: 2019Q2

REPORT INFORMATION
  Report Type: Report from Study
  Country: US (occurrence: US)
  Receive Date: 20190315
  Receipt Date: 20190409
  Transmission Date: 20190711
  Serious: Yes (Other)
  Sender: FDA-Public Use
  Company Number: US-SHIRE-US201908237

PATIENT
  Age: 58 Year
  Sex: Female

DRUGS (1)
  1. GATTEX [Suspect]
     Active Substance: TEDUGLUTIDE\WATER
     Indication: MALABSORPTION
     Dosage: 0.3675 UNK, 1X/DAY:QD
     Route: 058
     Dates: start: 20180910

REACTIONS (5)
  - Small intestinal obstruction [Recovering/Resolving]
  - Pneumonia [Recovering/Resolving]
  - Renal disorder [Unknown]
  - Fluid retention [Unknown]
  - Blood creatinine abnormal [Recovering/Resolving]

NARRATIVE: CASE EVENT DATE: 20190326
